FAERS Safety Report 4779737-0 (Version None)
Quarter: 2005Q3

REPORT INFORMATION
  Report Type: 
  Country: None (occurrence: None)
  Receive Date: 20050927
  Receipt Date: 20050829
  Transmission Date: 20060218
  Serious: Yes (Other)
  Sender: FDA-Public Use
  Company Number: PHBS2005CA12874

PATIENT
  Age: 48 Year
  Sex: 0
  Weight: 57 kg

DRUGS (3)
  1. ZELNORM [Suspect]
     Indication: IRRITABLE BOWEL SYNDROME
     Dosage: 6 MG, BID
     Route: 048
     Dates: start: 20050818, end: 20050822
  2. EFFEXOR XR [Concomitant]
     Dosage: 75 MG, UNK
     Dates: start: 20050727
  3. QUININE [Concomitant]
     Dosage: 300 MG, UNK

REACTIONS (2)
  - ERYTHEMA NODOSUM [None]
  - PAIN [None]
